FAERS Safety Report 10502217 (Version 2)
Quarter: 2014Q4

REPORT INFORMATION
  Report Type: Report from Study
  Country: MX (occurrence: MX)
  Receive Date: 20141007
  Receipt Date: 20141017
  Transmission Date: 20150528
  Serious: Yes (Life-Threatening, Other)
  Sender: FDA-Public Use
  Company Number: PHHY2014MX130364

PATIENT
  Age: 62 Year
  Sex: Female

DRUGS (4)
  1. CO-DIOVAN [Suspect]
     Active Substance: HYDROCHLOROTHIAZIDE\VALSARTAN
     Indication: HYPERTENSION
     Dosage: 40 MG, QD
     Route: 048
  2. CO-DIOVAN [Suspect]
     Active Substance: HYDROCHLOROTHIAZIDE\VALSARTAN
     Dosage: 80 MG, QD
     Route: 048
  3. EDARBYCLOR [Concomitant]
     Active Substance: AZILSARTAN KAMEDOXOMIL\CHLORTHALIDONE
     Indication: HYPERTENSION
     Dosage: 0.5 DF, UNK
     Route: 065
     Dates: start: 201402
  4. CO-DIOVAN [Suspect]
     Active Substance: HYDROCHLOROTHIAZIDE\VALSARTAN
     Dosage: 1 DF (160/ 12.5 MG), QD
     Route: 048

REACTIONS (7)
  - General physical health deterioration [Unknown]
  - Immunodeficiency [Unknown]
  - Headache [Unknown]
  - Drug dependence [Not Recovered/Not Resolved]
  - Blood pressure increased [Unknown]
  - Peripheral venous disease [Unknown]
  - Pain in extremity [Unknown]
